FAERS Safety Report 6600811-8 (Version None)
Quarter: 2010Q1

REPORT INFORMATION
  Report Type: 
  Country: None (occurrence: None)
  Receive Date: 20100223
  Receipt Date: 20100223
  Transmission Date: 20100710
  Serious: Yes (Other)
  Sender: FDA-Public Use
  Company Number: None

PATIENT
  Age: 23 Year
  Sex: Female
  Weight: 54.4316 kg

DRUGS (1)
  1. VAGINAL CONTRACEPTIVE FILM NONOXYNOL - 9-28% APOTHECUS PHARMACEUTICAL [Suspect]
     Indication: CONTRACEPTION
     Dosage: WHEN NEEDED 3 HOUR VAG, ONLY 1 FILM USED IN 24
     Route: 067
     Dates: start: 20100219, end: 20100219

REACTIONS (1)
  - URINARY TRACT INFECTION [None]
